FAERS Safety Report 17321737 (Version 1)
Quarter: 2020Q1

REPORT INFORMATION
  Report Type: Spontaneous
  Country: CA (occurrence: CA)
  Receive Date: 20200127
  Receipt Date: 20200127
  Transmission Date: 20200409
  Serious: Yes (Other)
  Sender: FDA-Public Use
  Company Number: CA-MTPC-MTDA2020-0039836

PATIENT

DRUGS (1)
  1. RADICAVA [Suspect]
     Active Substance: EDARAVONE
     Indication: AMYOTROPHIC LATERAL SCLEROSIS
     Dosage: 60 MILLIGRAM, ONCE EVERY 10 DAYS FOR 14 DAYS
     Route: 042

REACTIONS (3)
  - Chest pain [Unknown]
  - Anxiety [Unknown]
  - Dyspnoea [Unknown]
